FAERS Safety Report 23475395 (Version 1)
Quarter: 2024Q1

REPORT INFORMATION
  Report Type: Report from Study
  Country: US (occurrence: US)
  Receive Date: 20240204
  Receipt Date: 20240204
  Transmission Date: 20240409
  Serious: No
  Sender: FDA-Public Use
  Company Number: US-EXELIXIS-CABO-23059467

PATIENT
  Sex: Male

DRUGS (12)
  1. CABOMETYX [Suspect]
     Active Substance: CABOZANTINIB S-MALATE
     Indication: Clear cell renal cell carcinoma
     Dosage: 40 MG, QD
     Route: 048
     Dates: end: 20221012
  2. CABOMETYX [Suspect]
     Active Substance: CABOZANTINIB S-MALATE
     Indication: Metastases to liver
     Dosage: 40 MG, QD
     Route: 048
     Dates: start: 20221024
  3. CABOMETYX [Suspect]
     Active Substance: CABOZANTINIB S-MALATE
     Indication: Metastases to pancreas
     Dosage: 20 MG
     Route: 048
     Dates: start: 20230104
  4. OPDIVO [Concomitant]
     Active Substance: NIVOLUMAB
  5. BRILINTA [Concomitant]
     Active Substance: TICAGRELOR
  6. CLONAZEPAM [Concomitant]
     Active Substance: CLONAZEPAM
  7. CLOPIDOGREL [Concomitant]
     Active Substance: CLOPIDOGREL BISULFATE
  8. IRBESARTAN [Concomitant]
     Active Substance: IRBESARTAN
  9. MEGACE [Concomitant]
     Active Substance: MEGESTROL ACETATE
  10. VITAMINS [Concomitant]
     Active Substance: VITAMINS
  11. ROSUVASTATIN [Concomitant]
     Active Substance: ROSUVASTATIN
  12. OMEPRAZOLE [Concomitant]
     Active Substance: OMEPRAZOLE

REACTIONS (3)
  - Haematuria [Unknown]
  - Fatigue [Unknown]
  - Stomatitis [Unknown]
